FAERS Safety Report 7743530-7 (Version None)
Quarter: 2011Q3

REPORT INFORMATION
  Report Type: 
  Country: None (occurrence: None)
  Receive Date: 20110912
  Receipt Date: 20110906
  Transmission Date: 20111222
  Serious: Yes (Life-Threatening, Hospitalization, Other)
  Sender: FDA-Public Use
  Company Number: US-JNJFOC-20110808255

PATIENT
  Sex: Male
  Weight: 92.53 kg

DRUGS (9)
  1. ALOXI [Concomitant]
     Indication: NAUSEA
     Route: 065
     Dates: start: 20110307, end: 20110425
  2. AREDIA [Suspect]
     Indication: MULTIPLE MYELOMA
     Dosage: DAY 1 AND EVERY 3 WEEKS
     Route: 042
     Dates: start: 20110307, end: 20110418
  3. KYTRIL [Concomitant]
     Indication: NAUSEA
     Route: 065
     Dates: start: 20110307, end: 20110425
  4. AREDIA [Suspect]
     Indication: METASTASES TO BONE
     Dosage: DAY 1 AND EVERY 3 WEEKS
     Route: 042
     Dates: start: 20110307, end: 20110418
  5. DECADRON [Concomitant]
     Indication: NAUSEA
     Dosage: 12.5 MG/ 40 MG
     Route: 065
     Dates: start: 20110307, end: 20110425
  6. ADRIAMYCIN PFS [Suspect]
     Indication: MULTIPLE MYELOMA
     Route: 042
     Dates: start: 20110307, end: 20110425
  7. VELCADE [Suspect]
     Dosage: DAY 1, 4, 8, 11 AND EVERY 3 WEEKS
     Route: 042
     Dates: start: 20110307, end: 20110428
  8. DOXORUBICIN HYDROCHLORIDE [Suspect]
     Indication: MULTIPLE MYELOMA
     Dosage: DAY 1, 8 AND EVERY 3 WEEKS
     Route: 042
     Dates: start: 20110307, end: 20110425
  9. VELCADE [Suspect]
     Indication: MULTIPLE MYELOMA
     Route: 042
     Dates: end: 20110509

REACTIONS (2)
  - RENAL FAILURE ACUTE [None]
  - HYPERGLYCAEMIA [None]
